FAERS Safety Report 16334588 (Version 4)
Quarter: 2019Q4

REPORT INFORMATION
  Report Type: Spontaneous
  Country: US (occurrence: US)
  Receive Date: 20190520
  Receipt Date: 20191113
  Transmission Date: 20200122
  Serious: No
  Sender: FDA-Public Use
  Company Number: US-JNJFOC-20190445318

PATIENT
  Age: 41 Year
  Sex: Female
  Weight: 74.91 kg

DRUGS (2)
  1. TREMFYA [Suspect]
     Active Substance: GUSELKUMAB
     Indication: PRODUCT USED FOR UNKNOWN INDICATION
     Route: 065
     Dates: start: 20190403, end: 20190403
  2. TREMFYA [Suspect]
     Active Substance: GUSELKUMAB
     Route: 065
     Dates: start: 20190404

REACTIONS (2)
  - Accidental exposure to product [Recovered/Resolved]
  - Syringe issue [Unknown]

NARRATIVE: CASE EVENT DATE: 20190403
